FAERS Safety Report 6827877-4 (Version None)
Quarter: 2010Q3

REPORT INFORMATION
  Report Type: 
  Country: None (occurrence: None)
  Receive Date: 20100709
  Receipt Date: 20100621
  Transmission Date: 20110219
  Serious: Yes (Hospitalization)
  Sender: FDA-Public Use
  Company Number: A0851904A

PATIENT
  Age: 57 Year
  Sex: Male
  Weight: 95 kg

DRUGS (1)
  1. AVANDIA [Suspect]
     Indication: DIABETES MELLITUS
     Dosage: 8MG TWICE PER DAY
     Route: 048
     Dates: start: 19990101, end: 20070101

REACTIONS (13)
  - BRAIN SCAN ABNORMAL [None]
  - CEREBRAL ATROPHY [None]
  - CHEST PAIN [None]
  - CHRONIC OBSTRUCTIVE PULMONARY DISEASE [None]
  - CONVULSION [None]
  - DEMENTIA [None]
  - DIZZINESS POSTURAL [None]
  - DYSGEUSIA [None]
  - DYSPNOEA [None]
  - EMPHYSEMA [None]
  - FALL [None]
  - NAUSEA [None]
  - VERTIGO [None]
